FAERS Safety Report 20004404 (Version 1)
Quarter: 2021Q4

REPORT INFORMATION
  Report Type: Spontaneous
  Country: IR (occurrence: IR)
  Receive Date: 20211027
  Receipt Date: 20211027
  Transmission Date: 20220304
  Serious: Yes (Other)
  Sender: FDA-Public Use
  Company Number: IR-CASPER PHARMA LLC-2021CAS000544

PATIENT
  Age: 43 Year
  Sex: Female

DRUGS (1)
  1. BISMUTH SUBSALICYLATE\METRONIDAZOLE\TETRACYCLINE HYDROCHLORIDE [Suspect]
     Active Substance: BISMUTH SUBSALICYLATE\METRONIDAZOLE\TETRACYCLINE HYDROCHLORIDE
     Indication: Helicobacter infection
     Dosage: UNK
     Route: 065

REACTIONS (4)
  - Deafness bilateral [Recovering/Resolving]
  - Neurotoxicity [Recovering/Resolving]
  - Encephalopathy [Recovering/Resolving]
  - Nervous system disorder [Recovering/Resolving]
